FAERS Safety Report 24953198 (Version 1)
Quarter: 2025Q1

REPORT INFORMATION
  Report Type: Spontaneous
  Country: CH (occurrence: CH)
  Receive Date: 20250211
  Receipt Date: 20250211
  Transmission Date: 20250409
  Serious: Yes (Death, Life-Threatening, Hospitalization, Other)
  Sender: BRISTOL-MYERS SQUIBB COMPANY
  Company Number: None

PATIENT
  Age: 56 Year
  Sex: Male

DRUGS (6)
  1. OPDUALAG [Suspect]
     Active Substance: NIVOLUMAB\RELATLIMAB-RMBW
     Indication: Metastatic malignant melanoma
     Route: 040
     Dates: start: 20240528, end: 20241029
  2. ACTEMRA [Suspect]
     Active Substance: TOCILIZUMAB
     Indication: Metastatic malignant melanoma
     Route: 040
     Dates: start: 20240903, end: 20241126
  3. METAMIZOLE [Suspect]
     Active Substance: METAMIZOLE
     Indication: Pain
     Route: 048
  4. XGEVA [Concomitant]
     Active Substance: DENOSUMAB
     Indication: Product used for unknown indication
     Route: 040
     Dates: start: 20240528, end: 20241029
  5. FLECTOR TISSUGEL EP [Concomitant]
     Indication: Product used for unknown indication
     Dosage: STICK TO PAINFUL JOINT
     Route: 062
  6. INFLIXIMAB [Concomitant]
     Active Substance: INFLIXIMAB
     Indication: Loss of consciousness
     Dates: start: 20240723, end: 20240723

REACTIONS (9)
  - Acute hepatic failure [Fatal]
  - Colitis [Fatal]
  - Intestinal ischaemia [Unknown]
  - Visceral venous thrombosis [Unknown]
  - Pericardial effusion [Unknown]
  - Myocarditis [Unknown]
  - Vitamin D deficiency [Unknown]
  - Polyarthritis [Unknown]
  - Immune-mediated hepatitis [Unknown]

NARRATIVE: CASE EVENT DATE: 20240625
